FAERS Safety Report 18957131 (Version 1)
Quarter: 2021Q1

REPORT INFORMATION
  Report Type: Spontaneous
  Country: US (occurrence: US)
  Receive Date: 20210302
  Receipt Date: 20210302
  Transmission Date: 20210420
  Serious: No
  Sender: FDA-Public Use
  Company Number: NVSC2021US043957

PATIENT
  Sex: Female

DRUGS (4)
  1. MINIVELLE [Suspect]
     Active Substance: ESTRADIOL
     Indication: ARTIFICIAL MENOPAUSE
     Dosage: CHANGING PATCH 2X PER WEEK, STARTED AFTER USE OF COMBIPATCH
     Route: 062
  2. PROGESTERONE. [Concomitant]
     Active Substance: PROGESTERONE
     Indication: ARTIFICIAL MENOPAUSE
     Dosage: UNK
     Route: 048
  3. ESTRADIOL. [Suspect]
     Active Substance: ESTRADIOL
     Indication: ARTIFICIAL MENOPAUSE
     Dosage: UNK
     Route: 062
  4. COMBIPATCH [Suspect]
     Active Substance: ESTRADIOL\NORETHINDRONE ACETATE
     Indication: ARTIFICIAL MENOPAUSE
     Dosage: THE LOWEST DOSE, CHANGING PATCH 2X PER WEEK STARTED APPROXIMATELY 2 YEARS AGO
     Route: 062

REACTIONS (5)
  - Wrong technique in product usage process [Unknown]
  - Pruritus [Unknown]
  - Skin irritation [Unknown]
  - Urticaria [Unknown]
  - Nasopharyngitis [Unknown]
